FAERS Safety Report 10309165 (Version 1)
Quarter: 2014Q3

REPORT INFORMATION
  Report Type: Spontaneous
  Country: JP (occurrence: JP)
  Receive Date: 20140716
  Receipt Date: 20140716
  Transmission Date: 20150326
  Serious: Yes (Hospitalization)
  Sender: FDA-Public Use
  Company Number: PHHY2014JP085404

PATIENT
  Sex: Female

DRUGS (6)
  1. RIVASTIGMIN [Suspect]
     Active Substance: RIVASTIGMINE
     Dosage: 6.9 MG/24 HOURS (13.5 MG, DAILY)
     Route: 062
     Dates: end: 2012
  2. RIVASTIGMIN [Suspect]
     Active Substance: RIVASTIGMINE
     Dosage: 1.9 MG/24 HOURS (4.5 MG, DAILY)
     Route: 062
     Dates: start: 2014
  3. RIVASTIGMIN [Suspect]
     Active Substance: RIVASTIGMINE
     Indication: DEMENTIA ALZHEIMER^S TYPE
     Dosage: 1.9 MG/24 HOURS (4.5 MG, DAILY)
     Route: 062
  4. RIVASTIGMIN [Suspect]
     Active Substance: RIVASTIGMINE
     Dosage: 1.9 MG/24 HOURS (4.5 MG, DAILY)
     Route: 062
     Dates: start: 2014, end: 2014
  5. RIVASTIGMIN [Suspect]
     Active Substance: RIVASTIGMINE
     Dosage: 4.6 MG/24 HOURS (9 MG, DAILY)
     Route: 062
  6. RIVASTIGMIN [Suspect]
     Active Substance: RIVASTIGMINE
     Dosage: 4.6 MG/24 HOURS (9 MG, DAILY)
     Route: 062
     Dates: start: 2014, end: 2014

REACTIONS (1)
  - Anaemia [Unknown]
